FAERS Safety Report 6808301-4 (Version None)
Quarter: 2010Q2

REPORT INFORMATION
  Report Type: 
  Country: None (occurrence: None)
  Receive Date: 20100629
  Receipt Date: 20090616
  Transmission Date: 20101027
  Serious: No
  Sender: FDA-Public Use
  Company Number: US-PFIZER INC-2009202181

PATIENT

DRUGS (3)
  1. VIAGRA [Suspect]
  2. CIALIS [Suspect]
  3. PRINIVIL [Concomitant]
     Indication: BLOOD PRESSURE ABNORMAL

REACTIONS (3)
  - DRUG INEFFECTIVE [None]
  - HANGOVER [None]
  - HEADACHE [None]
